FAERS Safety Report 8024065-3 (Version None)
Quarter: 2012Q1

REPORT INFORMATION
  Report Type: 
  Country: None (occurrence: None)
  Receive Date: 20120105
  Receipt Date: 20120103
  Transmission Date: 20120608
  Serious: Yes (Life-Threatening, Hospitalization)
  Sender: FDA-Public Use
  Company Number: FR-B.I. PHARMACEUTICALS,INC./RIDGEFIELD-2011-FF-01053FF

PATIENT
  Sex: Female

DRUGS (9)
  1. OLMESARTAN MEDOXOMIL [Suspect]
     Dosage: 10 MG
  2. NEXIUM [Concomitant]
     Dosage: 20 MG
  3. LASIX [Suspect]
     Dosage: 20 MG
  4. PRADAXA [Suspect]
     Indication: ATRIAL FIBRILLATION
     Dosage: 150 MG
     Route: 048
     Dates: start: 20110916, end: 20111004
  5. BISOPROLOL FUMARATE [Concomitant]
     Dosage: 2.5 MG
  6. ALDACTONE [Suspect]
     Dosage: 25 MG
  7. CORDARONE [Concomitant]
     Route: 048
  8. BISOPROLOL FUMARATE [Concomitant]
     Dosage: 3.75 MG
  9. ACETAMINOPHEN [Concomitant]

REACTIONS (8)
  - SHOCK HAEMORRHAGIC [None]
  - MELAENA [None]
  - COAGULATION TIME PROLONGED [None]
  - RENAL FAILURE ACUTE [None]
  - PERITONEAL HAEMORRHAGE [None]
  - EPISTAXIS [None]
  - HAEMATURIA [None]
  - APLASTIC ANAEMIA [None]
